FAERS Safety Report 5063155-4 (Version None)
Quarter: 2006Q3

REPORT INFORMATION
  Report Type: 
  Country: None (occurrence: None)
  Receive Date: 20060724
  Receipt Date: 20060705
  Transmission Date: 20061208
  Serious: Yes (Other)
  Sender: FDA-Public Use
  Company Number: US200602002577

PATIENT
  Age: 77 Year
  Sex: Female
  Weight: 66.2 kg

DRUGS (11)
  1. CYMBALTA [Suspect]
     Indication: DEPRESSION
     Dosage: 30 MG
  2. QUINAPRIL HCL [Concomitant]
  3. SIMVASTATIN [Concomitant]
  4. EZETIMIBE (EZETIMIBE) [Concomitant]
  5. ASPIRIN TAB [Concomitant]
  6. LOZOL [Concomitant]
  7. OGEN [Concomitant]
  8. ALUPENT [Concomitant]
  9. SINGULAIR [Concomitant]
  10. FLOVENT [Concomitant]
  11. VALIUM [Concomitant]

REACTIONS (10)
  - ASTHENIA [None]
  - BLOOD PRESSURE DECREASED [None]
  - CHILLS [None]
  - DIZZINESS [None]
  - FATIGUE [None]
  - HOT FLUSH [None]
  - HYPERHIDROSIS [None]
  - LETHARGY [None]
  - NAUSEA [None]
  - VISION BLURRED [None]
